FAERS Safety Report 5755491-0 (Version None)
Quarter: 2008Q2

REPORT INFORMATION
  Report Type: 
  Country: None (occurrence: None)
  Receive Date: 20080602
  Receipt Date: 20080526
  Transmission Date: 20081010
  Serious: Yes (Hospitalization)
  Sender: FDA-Public Use
  Company Number: FR-WYE-G01586208

PATIENT
  Sex: Female

DRUGS (9)
  1. EFFEXOR [Suspect]
     Route: 048
     Dates: start: 20071101
  2. ALPRAZOLAM [Concomitant]
     Route: 048
  3. NEBIVOLOL HCL [Concomitant]
     Route: 048
  4. DISCOTRINE [Concomitant]
     Route: 062
  5. FUROSEMIDE [Concomitant]
     Route: 048
  6. HYPERIUM [Concomitant]
     Route: 048
  7. PANTOPRAZOLE SODIUM [Concomitant]
     Route: 048
  8. COUMADIN [Suspect]
     Route: 048
     Dates: start: 20071101, end: 20080128
  9. AMLOR [Concomitant]
     Route: 048

REACTIONS (3)
  - HAEMOGLOBIN DECREASED [None]
  - INTERNATIONAL NORMALISED RATIO INCREASED [None]
  - SPONTANEOUS HAEMATOMA [None]
